FAERS Safety Report 7244145-X (Version None)
Quarter: 2011Q1

REPORT INFORMATION
  Report Type: 
  Country: None (occurrence: None)
  Receive Date: 20110119
  Receipt Date: 20110119
  Transmission Date: 20110831
  Serious: Yes (Hospitalization)
  Sender: FDA-Public Use
  Company Number: None

PATIENT

DRUGS (2)
  1. HEPARIN [Suspect]
     Indication: VASCULAR GRAFT
     Dosage: SEE DESCRIPTION FOR TOTAL AMOU AS NEEDED IV BOLUS
     Route: 040
  2. HEPARIN [Suspect]

REACTIONS (1)
  - COAGULATION TIME SHORTENED [None]
